FAERS Safety Report 4490716-3 (Version None)
Quarter: 2004Q4

REPORT INFORMATION
  Report Type: 
  Country: None (occurrence: None)
  Receive Date: 20041102
  Receipt Date: 20041025
  Transmission Date: 20050328
  Serious: Yes (Other)
  Sender: FDA-Public Use
  Company Number: GB-ROCHE-384220

PATIENT
  Age: 43 Year
  Sex: Male
  Weight: 78 kg

DRUGS (1)
  1. FUZEON [Suspect]
     Indication: DRUG USE FOR UNKNOWN INDICATION
     Dosage: DOSING REGIME REPORTED AS 90 BD.
     Route: 058
     Dates: start: 20031215

REACTIONS (3)
  - DRY EYE [None]
  - EYE PAIN [None]
  - EYE REDNESS [None]
